FAERS Safety Report 4767620-6 (Version None)
Quarter: 2005Q3

REPORT INFORMATION
  Report Type: 
  Country: None (occurrence: None)
  Receive Date: 20050909
  Receipt Date: 20050902
  Transmission Date: 20060218
  Serious: Yes (Other)
  Sender: FDA-Public Use
  Company Number: COV2-2005-00186

PATIENT
  Age: 79 Year
  Sex: Female
  Weight: 70 kg

DRUGS (10)
  1. FOSRENOL (LANTANUM CARBONATE 500 MG) TABLET CHEWABLE [Suspect]
     Indication: HYPERPHOSPHATAEMIA
     Dosage: 500 MG, 3X/DAY:  TID, ORAL
     Route: 048
     Dates: start: 20050317, end: 20050602
  2. LIPITOR [Concomitant]
  3. NEPHROCAPS (FOLIC ACID, VITAMINS NOS) TABLET [Concomitant]
  4. PRINIVIL [Concomitant]
  5. ATENOLOL [Concomitant]
  6. LEVOTHROID [Concomitant]
  7. IMODIUM [Concomitant]
  8. SENSIPAR [Concomitant]
  9. HECTOROL [Concomitant]
  10. EPOGEN [Concomitant]

REACTIONS (13)
  - ANAEMIA MACROCYTIC [None]
  - ANAEMIA OF CHRONIC DISEASE [None]
  - DIALYSIS [None]
  - LYMPHOPENIA [None]
  - MALNUTRITION [None]
  - METHYLMALONIC ACIDURIA [None]
  - MYELOFIBROSIS [None]
  - PERNICIOUS ANAEMIA [None]
  - PLATELET DESTRUCTION INCREASED [None]
  - PLATELET MORPHOLOGY ABNORMAL [None]
  - PROPIONIBACTERIUM INFECTION [None]
  - THROMBOCYTOPENIA [None]
  - VITAMIN B12 DEFICIENCY [None]
